FAERS Safety Report 23279685 (Version 1)
Quarter: 2023Q4

REPORT INFORMATION
  Report Type: Spontaneous
  Country: US (occurrence: US)
  Receive Date: 20231210
  Receipt Date: 20231210
  Transmission Date: 20240109
  Serious: Yes (Life-Threatening, Hospitalization, Other)
  Sender: FDA-Public Use
  Company Number: US-MLMSERVICE-20231115-4661141-1

PATIENT
  Age: 15 Year
  Sex: Female
  Weight: 96 kg

DRUGS (3)
  1. ESOMEPRAZOLE [Interacting]
     Active Substance: ESOMEPRAZOLE
     Indication: Gastrooesophageal reflux disease
     Dosage: UNKNOWN
     Route: 065
  2. PEGASPARGASE [Suspect]
     Active Substance: PEGASPARGASE
     Indication: Central nervous system leukaemia
     Dosage: PEGASPARAGASE AT 2500 IU/M2/DOSE
     Route: 065
  3. METHOTREXATE [Interacting]
     Active Substance: METHOTREXATE
     Indication: Central nervous system leukaemia
     Dosage: STARTING AT A DOSE OF 100 MG/M2/DAY
     Route: 042

REACTIONS (8)
  - Multiple organ dysfunction syndrome [Recovering/Resolving]
  - Hepatic steatosis [Recovering/Resolving]
  - Acute kidney injury [Recovering/Resolving]
  - Chemotherapeutic drug level increased [Recovered/Resolved]
  - Acute hepatic failure [Recovering/Resolving]
  - Drug interaction [Recovering/Resolving]
  - Disease progression [Recovering/Resolving]
  - Pancreatitis [Recovering/Resolving]
